FAERS Safety Report 16939225 (Version 1)
Quarter: 2019Q4

REPORT INFORMATION
  Report Type: Spontaneous
  Country: US (occurrence: US)
  Receive Date: 20191021
  Receipt Date: 20191021
  Transmission Date: 20200122
  Serious: Yes (Hospitalization)
  Sender: FDA-Public Use
  Company Number: US-BEH-2019108085

PATIENT
  Age: 6 Year
  Sex: Female

DRUGS (2)
  1. ONE DOUBLE-ENDED NEEDLE FOR RECONSTITUTION/ADMINISTRATION SET(IVIG LYOPHILIZED) [Concomitant]
     Active Substance: HUMAN IMMUNOGLOBULIN G
     Dosage: UNK
     Route: 042
     Dates: start: 201909
  2. HIZENTRA [Suspect]
     Active Substance: HUMAN IMMUNOGLOBULIN G
     Indication: IMMUNODEFICIENCY
     Dosage: 4 GRAM, QOW
     Route: 058
     Dates: start: 20190304

REACTIONS (4)
  - Gastroenteritis [Unknown]
  - Hospitalisation [Unknown]
  - Therapy cessation [Unknown]
  - No adverse event [Unknown]

NARRATIVE: CASE EVENT DATE: 20190927
